FAERS Safety Report 10453482 (Version 2)
Quarter: 2014Q4

REPORT INFORMATION
  Report Type: Report from Study
  Country: BR (occurrence: BR)
  Receive Date: 20140915
  Receipt Date: 20141011
  Transmission Date: 20150528
  Serious: Yes (Other)
  Sender: FDA-Public Use
  Company Number: PHHY2014BR119165

PATIENT
  Sex: Female
  Weight: 70 kg

DRUGS (6)
  1. LOSARTAN [Concomitant]
     Active Substance: LOSARTAN
     Indication: HYPERTENSION
     Dosage: 2 DF, DAILY
     Route: 048
  2. QUETROS [Concomitant]
     Active Substance: QUETIAPINE
     Indication: AGITATION
     Dosage: 2 DF, DAILY
     Route: 048
  3. INDAPEN [Concomitant]
     Active Substance: INDAPAMIDE
     Indication: HYPERTENSION
     Dosage: 1 DF, DAILY
     Route: 048
  4. EXELON PATCH [Suspect]
     Active Substance: RIVASTIGMINE
     Indication: DEMENTIA ALZHEIMER^S TYPE
     Dosage: 4.6 MG (PATCH 5 CM2), DAILY
     Route: 062
  5. CALTREN [Concomitant]
     Active Substance: NITRENDIPINE
     Indication: HYPERTENSION
     Dosage: 2 DF, DAILY
     Route: 048
  6. EXELON PATCH [Suspect]
     Active Substance: RIVASTIGMINE
     Dosage: 9.5 MG (PATCH 10 CM2), DAILY
     Route: 062

REACTIONS (2)
  - Diabetes mellitus [Recovering/Resolving]
  - Weight decreased [Not Recovered/Not Resolved]
